FAERS Safety Report 9288440 (Version 2)
Quarter: 2013Q2

REPORT INFORMATION
  Report Type: Spontaneous
  Country: US (occurrence: US)
  Receive Date: 20130514
  Receipt Date: 20130522
  Transmission Date: 20140414
  Serious: Yes (Hospitalization, Other)
  Sender: FDA-Public Use
  Company Number: US-PFIZER INC-HQWYE633914JAN05

PATIENT
  Age: 80 Year
  Sex: Female

DRUGS (4)
  1. PROTONIX [Suspect]
     Indication: GASTROOESOPHAGEAL REFLUX DISEASE
     Dosage: 40 MG, 1X/DAY
     Route: 048
     Dates: start: 20041229, end: 20041231
  2. SOLU-MEDROL [Concomitant]
     Dosage: UNK
     Route: 065
  3. SALBUTAMOL [Concomitant]
     Dosage: UNK
     Route: 055
  4. METHYLPREDNISOLONE SODIUM SUCCINATE [Concomitant]
     Dosage: UNK

REACTIONS (3)
  - Chronic obstructive pulmonary disease [Recovered/Resolved]
  - Condition aggravated [Recovered/Resolved]
  - Pancytopenia [Recovered/Resolved]
